FAERS Safety Report 16314154 (Version 1)
Quarter: 2019Q2

REPORT INFORMATION
  Report Type: Spontaneous
  Country: US (occurrence: US)
  Receive Date: 20190409
  Receipt Date: 20190409
  Transmission Date: 20190711
  Serious: Yes (Disabling)
  Sender: FDA-Public Use
  Company Number: None

PATIENT
  Age: 79 Year
  Sex: Female
  Weight: 54.43 kg

DRUGS (11)
  1. CARVEDILOL. [Concomitant]
     Active Substance: CARVEDILOL
  2. OMEGA KRILL OIL [Concomitant]
  3. OLIVE LEAF EXTRACT [Concomitant]
  4. VIT D [Concomitant]
     Active Substance: VITAMIN D NOS
  5. BONE-UP [Concomitant]
  6. ASA [Concomitant]
     Active Substance: ASPIRIN
  7. RALOXIFENE. [Suspect]
     Active Substance: RALOXIFENE
     Indication: PROPHYLAXIS
     Dosage: ?          QUANTITY:1 DF DOSAGE FORM;?
     Route: 048
     Dates: start: 20160416, end: 20160930
  8. ADVIL [Concomitant]
     Active Substance: IBUPROFEN
  9. COQ10 [Concomitant]
     Active Substance: UBIDECARENONE
  10. MELATONIN [Concomitant]
     Active Substance: MELATONIN
  11. IBANDRONATE SODIUM TABLET [Suspect]
     Active Substance: IBANDRONATE SODIUM
     Indication: OSTEOPOROSIS PROPHYLAXIS
     Dosage: ?          QUANTITY:1 DF DOSAGE FORM;?
     Route: 048

REACTIONS (8)
  - Muscular weakness [None]
  - Balance disorder [None]
  - Headache [None]
  - Pain [None]
  - Muscle spasms [None]
  - Gait disturbance [None]
  - Hot flush [None]
  - Insomnia [None]

NARRATIVE: CASE EVENT DATE: 20160916
